FAERS Safety Report 23206753 (Version 1)
Quarter: 2023Q4

REPORT INFORMATION
  Report Type: Other
  Country: US (occurrence: US)
  Receive Date: 20231120
  Receipt Date: 20231120
  Transmission Date: 20240110
  Serious: No
  Sender: FDA-Public Use
  Company Number: US-UROVANT SCIENCES GMBH-202308-URV-001486

PATIENT
  Age: 89 Year
  Sex: Male

DRUGS (2)
  1. GEMTESA [Suspect]
     Active Substance: VIBEGRON
     Indication: Hypertonic bladder
     Dosage: 75 MG, QD
     Route: 048
     Dates: end: 202307
  2. GEMTESA [Suspect]
     Active Substance: VIBEGRON
     Dosage: 75 MG, QD
     Route: 048

REACTIONS (3)
  - Product availability issue [Recovered/Resolved]
  - Urinary incontinence [Unknown]
  - Nocturia [Unknown]

NARRATIVE: CASE EVENT DATE: 20230701
